FAERS Safety Report 8024620-0 (Version None)
Quarter: 2012Q1

REPORT INFORMATION
  Report Type: 
  Country: None (occurrence: None)
  Receive Date: 20120105
  Receipt Date: 20111123
  Transmission Date: 20120608
  Serious: Yes (Hospitalization)
  Sender: FDA-Public Use
  Company Number: US-RB-032339-11

PATIENT
  Age: 71 Year
  Sex: Male

DRUGS (1)
  1. LANACANE SPRAY [Suspect]
     Indication: SKIN CANCER
     Dosage: 2 QUICK SPRAYS
     Route: 061

REACTIONS (6)
  - FEELING ABNORMAL [None]
  - PALLOR [None]
  - DYSPNOEA [None]
  - ERYTHEMA [None]
  - BURNING SENSATION [None]
  - PRURITUS [None]
